FAERS Safety Report 21091300 (Version 1)
Quarter: 2022Q3

REPORT INFORMATION
  Report Type: Spontaneous
  Country: JP (occurrence: JP)
  Receive Date: 20220716
  Receipt Date: 20220716
  Transmission Date: 20221027
  Serious: Yes (Death, Life-Threatening, Other)
  Sender: FDA-Public Use
  Company Number: JP-MACLEODS PHARMACEUTICALS US LTD-MAC2022036469

PATIENT

DRUGS (1)
  1. CLOPIDOGREL [Suspect]
     Active Substance: CLOPIDOGREL BISULFATE
     Indication: Moyamoya disease
     Dosage: 75 MILLIGRAM, QD
     Route: 048

REACTIONS (4)
  - Coma [Fatal]
  - Bleeding time prolonged [Fatal]
  - Respiratory arrest [Fatal]
  - Cerebral haemorrhage [Fatal]
